FAERS Safety Report 17568562 (Version 1)
Quarter: 2020Q1

REPORT INFORMATION
  Report Type: Spontaneous
  Country: CH (occurrence: CH)
  Receive Date: 20200320
  Receipt Date: 20200320
  Transmission Date: 20200409
  Serious: No
  Sender: FDA-Public Use
  Company Number: CH-LEXICON PHARMACEUTICALS, INC-20-1606-00200

PATIENT
  Sex: Male

DRUGS (1)
  1. XERMELO [Suspect]
     Active Substance: TELOTRISTAT ETHYL
     Indication: DIARRHOEA
     Dosage: UNKNOWN
     Route: 065

REACTIONS (1)
  - Off label use [Unknown]
